FAERS Safety Report 10777590 (Version 2)
Quarter: 2015Q2

REPORT INFORMATION
  Report Type: Spontaneous
  Country: US (occurrence: US)
  Receive Date: 20150209
  Receipt Date: 20150511
  Transmission Date: 20150821
  Serious: Yes (Life-Threatening, Other)
  Sender: FDA-Public Use
  Company Number: US-ELI_LILLY_AND_COMPANY-US201501010506

PATIENT
  Age: 65 Year
  Sex: Male

DRUGS (14)
  1. CALCIUM [Concomitant]
     Active Substance: CALCIUM
  2. NITROGLYCERIN. [Concomitant]
     Active Substance: NITROGLYCERIN
  3. SIMVASTATINE [Concomitant]
     Active Substance: SIMVASTATIN
  4. TYLENOL [Concomitant]
     Active Substance: ACETAMINOPHEN
  5. COLCHICINE. [Concomitant]
     Active Substance: COLCHICINE
  6. XANAX [Concomitant]
     Active Substance: ALPRAZOLAM
  7. AXIRON [Suspect]
     Active Substance: TESTOSTERONE
     Indication: HORMONE REPLACEMENT THERAPY
     Dosage: UNK, UNKNOWN
     Route: 061
     Dates: start: 20111201
  8. ANDROGEL [Suspect]
     Active Substance: TESTOSTERONE
     Indication: HORMONE REPLACEMENT THERAPY
     Dosage: UNK, UNKNOWN
     Route: 061
     Dates: start: 20111105
  9. AMBIEN [Concomitant]
     Active Substance: ZOLPIDEM TARTRATE
  10. LOSARTAN [Concomitant]
     Active Substance: LOSARTAN
  11. OMEGA 3                            /01334101/ [Concomitant]
     Active Substance: OMEGA-3 FATTY ACIDS
  12. PROTONIX                           /01263204/ [Concomitant]
  13. LIPITOR [Concomitant]
     Active Substance: ATORVASTATIN CALCIUM
  14. ACETAMINOPHEN. [Concomitant]
     Active Substance: ACETAMINOPHEN

REACTIONS (3)
  - Acute myocardial infarction [Unknown]
  - Pulmonary embolism [Unknown]
  - Ventricular fibrillation [Unknown]

NARRATIVE: CASE EVENT DATE: 20120209
